FAERS Safety Report 16915722 (Version 1)
Quarter: 2019Q4

REPORT INFORMATION
  Report Type: Spontaneous
  Country: US (occurrence: US)
  Receive Date: 20191014
  Receipt Date: 20191014
  Transmission Date: 20200122
  Serious: No
  Sender: FDA-Public Use
  Company Number: US-TEVA-2019-US-1120312

PATIENT
  Age: 30 Year
  Sex: Female

DRUGS (2)
  1. DEXTROAMPHETAMINE SULFATE EXTENDED RELEASE CAPSULES [Suspect]
     Active Substance: DEXTROAMPHETAMINE SULFATE
     Indication: AUTISM SPECTRUM DISORDER
  2. DEXTROAMPHETAMINE SULFATE EXTENDED RELEASE CAPSULES [Suspect]
     Active Substance: DEXTROAMPHETAMINE SULFATE
     Indication: ATTENTION DEFICIT/HYPERACTIVITY DISORDER
     Route: 065
     Dates: start: 2009

REACTIONS (3)
  - Oral pain [Unknown]
  - Dry mouth [Unknown]
  - Acquired enamel hypoplasia [Unknown]

NARRATIVE: CASE EVENT DATE: 2014
